FAERS Safety Report 11719589 (Version 1)
Quarter: 2015Q4

REPORT INFORMATION
  Report Type: Spontaneous
  Country: US (occurrence: None)
  Receive Date: 20151109
  Receipt Date: 20151109
  Transmission Date: 20160304
  Serious: Yes (Other)
  Sender: FDA-Public Use
  Company Number: None

PATIENT
  Age: 31 Year
  Sex: Female
  Weight: 104.33 kg

DRUGS (9)
  1. NATURE MADE PRENATAL VITAMIN (A-D, FOLIC ACID, IRON, ZINC) [Concomitant]
  2. INVOKANA [Concomitant]
     Active Substance: CANAGLIFLOZIN
  3. BIOTIN [Concomitant]
     Active Substance: BIOTIN
  4. NIACIN. [Concomitant]
     Active Substance: NIACIN
  5. METFORMIN [Concomitant]
     Active Substance: METFORMIN HYDROCHLORIDE
  6. PROBIOTIC [Concomitant]
     Active Substance: PROBIOTICS NOS
  7. ALLI [Suspect]
     Active Substance: ORLISTAT
     Indication: WEIGHT DECREASED
  8. ALLI [Suspect]
     Active Substance: ORLISTAT
     Indication: DIABETES MELLITUS INADEQUATE CONTROL
  9. D^MANNOSE [Concomitant]

REACTIONS (5)
  - Disorientation [None]
  - Confusional state [None]
  - Speech disorder [None]
  - Blood glucose decreased [None]
  - Amnesia [None]

NARRATIVE: CASE EVENT DATE: 20151107
